FAERS Safety Report 17457033 (Version 1)
Quarter: 2020Q1

REPORT INFORMATION
  Report Type: Spontaneous
  Country: US (occurrence: US)
  Receive Date: 20200225
  Receipt Date: 20200225
  Transmission Date: 20200409
  Serious: No
  Sender: FDA-Public Use
  Company Number: US-SA-2020SA044278

PATIENT
  Age: 11 Year
  Weight: 66 kg

DRUGS (1)
  1. IMOGAM RABIES-HT [Suspect]
     Active Substance: HUMAN RABIES VIRUS IMMUNE GLOBULIN
     Indication: ANIMAL BITE
     Dosage: UNK, 40 UNIT/KG DOSE
     Route: 065

REACTIONS (1)
  - Overdose [Unknown]
